FAERS Safety Report 14023316 (Version 3)
Quarter: 2020Q3

REPORT INFORMATION
  Report Type: Report from Study
  Country: US (occurrence: US)
  Receive Date: 20170929
  Receipt Date: 20180405
  Transmission Date: 20201105
  Serious: Yes (Death, Hospitalization)
  Sender: FDA-Public Use
  Company Number: US-ASTRAZENECA-2017SE98694

PATIENT
  Age: 25437 Day
  Sex: Female
  Weight: 66.7 kg

DRUGS (2)
  1. TREMELIMUMAB. [Suspect]
     Active Substance: TREMELIMUMAB
     Indication: MALIGNANT GLIOMA
     Route: 042
     Dates: start: 20170725, end: 20170920
  2. MEDI4736 [Suspect]
     Active Substance: DURVALUMAB
     Indication: MALIGNANT GLIOMA
     Route: 042
     Dates: start: 20170725, end: 20170920

REACTIONS (1)
  - Wound infection [Recovered/Resolved]

NARRATIVE: CASE EVENT DATE: 20170925
